FAERS Safety Report 23683363 (Version 9)
Quarter: 2025Q4

REPORT INFORMATION
  Report Type: Report from Study
  Country: EU (occurrence: EU)
  Receive Date: 20240328
  Receipt Date: 20251222
  Transmission Date: 20260118
  Serious: Yes (Death, Other)
  Sender: AMGEN
  Company Number: EU-AMGEN-PRTSP2024060177

PATIENT
  Age: 52 Year
  Sex: Female
  Weight: 58 kg

DRUGS (71)
  1. FILGRASTIM [Suspect]
     Active Substance: FILGRASTIM
     Indication: Product used for unknown indication
     Dosage: UNK, FORMULATION (SOLUTION FOR INJECTION)
     Route: 065
     Dates: start: 20221230, end: 20221230
  2. FLUOROURACIL [Suspect]
     Active Substance: FLUOROURACIL
     Indication: HER2 positive breast cancer
     Dosage: UNK (3 WEEKS); MOST RECENT DOSE: 03/JAN/2021
     Route: 042
     Dates: start: 20201013
  3. VINORELBINE [Suspect]
     Active Substance: VINORELBINE TARTRATE
     Indication: HER2 positive breast cancer
     Dosage: UNK, 1 WEEK, MOST RECENT DOSE: 01/OCT/2020
     Route: 042
     Dates: start: 20200310, end: 20201001
  4. METHOTREXATE [Suspect]
     Active Substance: METHOTREXATE
     Indication: HER2 positive breast cancer
     Dosage: Q3W, TREXALL
     Route: 040
     Dates: start: 20201013, end: 20210103
  5. DOCETAXEL [Suspect]
     Active Substance: DOCETAXEL
     Indication: HER2 positive breast cancer
     Dosage: UNK (3 WEEKS), TAXOTERE SOLUTION FOR INJECTION
     Route: 040
     Dates: start: 20210104, end: 20210629
  6. CYTOXAN [Suspect]
     Active Substance: CYCLOPHOSPHAMIDE
     Indication: HER2 positive breast cancer
     Dosage: UNK (3 WEEKS), MOST RECENT DOSE: 03/JAN/2021
     Route: 042
     Dates: start: 20201013, end: 20210103
  7. GEMZAR [Suspect]
     Active Substance: GEMCITABINE HYDROCHLORIDE
     Indication: HER2 positive breast cancer
     Dosage: UNK (3 WEEKS); MOST RECENT DOSE: 30/DEC/2022
     Route: 065
     Dates: start: 20221214, end: 20221230
  8. TAXOTERE [Suspect]
     Active Substance: DOCETAXEL
     Indication: HER2 positive breast cancer
     Dosage: UNK, 3 WEEKS, MOST RECENT DOSE: 29/JUN/2021
     Route: 042
     Dates: start: 20210104, end: 20210629
  9. TREXALL [Suspect]
     Active Substance: METHOTREXATE SODIUM
     Indication: HER2 positive breast cancer
     Dosage: UNK (3 WEEKS); MOST RECENT DOSE: 03/JAN/2021
     Route: 042
     Dates: start: 20201013, end: 20210103
  10. FAM-TRASTUZUMAB DERUXTECAN-NXKI [Suspect]
     Active Substance: FAM-TRASTUZUMAB DERUXTECAN-NXKI
     Indication: HER2 positive breast cancer
     Dosage: UNK, Q3W
     Route: 042
     Dates: start: 20210714, end: 20221124
  11. FAM-TRASTUZUMAB DERUXTECAN-NXKI [Suspect]
     Active Substance: FAM-TRASTUZUMAB DERUXTECAN-NXKI
     Dosage: 190.8 MICROGRAM (29/JUL/2019)
     Route: 065
     Dates: start: 20190308, end: 20190308
  12. FAM-TRASTUZUMAB DERUXTECAN-NXKI [Suspect]
     Active Substance: FAM-TRASTUZUMAB DERUXTECAN-NXKI
     Dosage: 190.8 UG, Q3W (18/MAR/2018)
     Route: 065
     Dates: start: 20170614
  13. PARAPLATIN [Suspect]
     Active Substance: CARBOPLATIN
     Indication: HER2 positive breast cancer
     Dosage: UNK (3 WEEKS); MOST RECENT DOSE: 30/DEC/2022
     Route: 042
     Dates: start: 20221214, end: 20221230
  14. GEMCITABINE [Suspect]
     Active Substance: GEMCITABINE
     Indication: HER2 positive breast cancer
     Dosage: UNK, Q3W(MOST RECENT DOSE: 30/DEC/2022), GEMZAR
     Route: 040
     Dates: start: 20221214, end: 20221230
  15. GEMCITABINE [Suspect]
     Active Substance: GEMCITABINE
     Dosage: UNK
     Route: 040
     Dates: start: 20221230
  16. CAPECITABINE [Suspect]
     Active Substance: CAPECITABINE
     Indication: HER2 positive breast cancer
     Dosage: 1300 MICROGRAM, BID
     Route: 048
     Dates: start: 20181115, end: 20181206
  17. CAPECITABINE [Suspect]
     Active Substance: CAPECITABINE
     Dosage: 1500 MICROGRAM, BID, 86 DAYS
     Route: 065
     Dates: start: 20180821, end: 20180821
  18. CAPECITABINE [Suspect]
     Active Substance: CAPECITABINE
     Dosage: 1800 MICROGRAM, BID, 86 DAYS
     Route: 065
     Dates: start: 20180529, end: 20180529
  19. CAPECITABINE [Suspect]
     Active Substance: CAPECITABINE
     Dosage: 1500 UG, BID
     Route: 048
     Dates: start: 20180821, end: 20181114
  20. TYKERB [Suspect]
     Active Substance: LAPATINIB DITOSYLATE
     Indication: HER2 positive breast cancer
     Dosage: 1000 MICROGRAM, QD
     Route: 048
     Dates: start: 20190207, end: 20190723
  21. XELODA [Suspect]
     Active Substance: CAPECITABINE
     Indication: Product used for unknown indication
     Dosage: 1500 MILLIGRAM, QD
     Route: 048
     Dates: start: 20180821, end: 20181114
  22. XELODA [Suspect]
     Active Substance: CAPECITABINE
     Dosage: 1800 MILLIGRAM, QD
     Route: 048
     Dates: start: 20180529, end: 20180820
  23. XELODA [Suspect]
     Active Substance: CAPECITABINE
     Dosage: 1300 MILLIGRAM, QD
     Route: 048
     Dates: start: 20181115, end: 20181206
  24. PERJETA [Suspect]
     Active Substance: PERTUZUMAB
     Indication: HER2 positive breast cancer
     Dosage: UNK (3 WEEKS)
     Route: 042
     Dates: start: 20190903, end: 20200218
  25. NAVELBINE [Suspect]
     Active Substance: VINORELBINE TARTRATE
     Indication: HER2 positive breast cancer
     Dosage: UNK, QW, MOST RECENT DOSE: 01/OCT/2020
     Route: 040
     Dates: start: 20200310, end: 20201001
  26. ADRUCIL [Suspect]
     Active Substance: FLUOROURACIL
     Indication: HER2 positive breast cancer
     Dosage: UNK (3 WEEKS), MOST RECENT DOSE: 03/JAN/2021
     Route: 040
     Dates: start: 20201013
  27. ADRUCIL [Suspect]
     Active Substance: FLUOROURACIL
     Dosage: UNK, QW
     Route: 040
     Dates: start: 20200310
  28. KADCYLA [Suspect]
     Active Substance: ADO-TRASTUZUMAB EMTANSINE
     Indication: HER2 positive breast cancer
     Dosage: 190.8 MILLIGRAM (3 WEEKS)
     Route: 042
     Dates: start: 20180417, end: 20180508
  29. KADCYLA [Suspect]
     Active Substance: ADO-TRASTUZUMAB EMTANSINE
     Dosage: MOST RECENT DOSE: 08/MAR/2018, 17/APR/2018
     Route: 042
     Dates: start: 20170614, end: 20180308
  30. TAXOL [Suspect]
     Active Substance: PACLITAXEL
     Indication: HER2 positive breast cancer
     Dosage: UNK (1 WEEK)
     Route: 042
     Dates: start: 20190813, end: 20200211
  31. HERCEPTIN [Suspect]
     Active Substance: TRASTUZUMAB
     Indication: HER2 positive breast cancer
     Dosage: UNK (3 WEEK)
     Route: 058
     Dates: start: 20180529, end: 20190117
  32. HERCEPTIN [Suspect]
     Active Substance: TRASTUZUMAB
     Dosage: UNK (3 WEEK)
     Route: 058
     Dates: start: 20180529
  33. HERCEPTIN [Suspect]
     Active Substance: TRASTUZUMAB
     Dosage: UNK (3 WEEKS)
     Route: 058
     Dates: start: 2019, end: 20190729
  34. HERCEPTIN [Suspect]
     Active Substance: TRASTUZUMAB
     Dosage: UNK (3 WEEKS); MOST RECENT DOSE: 30/DEC/2022
     Route: 042
     Dates: start: 20221214, end: 20221230
  35. PACLITAXEL [Suspect]
     Active Substance: PACLITAXEL
     Indication: HER2 positive breast cancer
     Dosage: UNK (1 WEEK)
     Route: 042
     Dates: start: 20190813, end: 20200211
  36. CARBOPLATIN [Suspect]
     Active Substance: CARBOPLATIN
     Indication: HER2 positive breast cancer
     Dosage: Q3W, PARAPLATIN
     Route: 042
     Dates: start: 20221214, end: 20221230
  37. EFUDEX [Suspect]
     Active Substance: FLUOROURACIL
     Indication: HER2 positive breast cancer
     Dosage: UNK, Q3W(MOST RECENT DOSE: 03/JAN/2021)
     Route: 040
     Dates: start: 20201013, end: 20210103
  38. FLUOROPLEX [Suspect]
     Active Substance: FLUOROURACIL
     Indication: HER2 positive breast cancer
     Dosage: UNK, Q3W(MOST RECENT DOSE: 03/JAN/2021)
     Route: 040
     Dates: start: 20201013, end: 20210103
  39. IVABRADINE [Concomitant]
     Active Substance: IVABRADINE
     Indication: Ejection fraction decreased
     Dosage: UNK
     Dates: start: 20180308, end: 20221230
  40. PREDNISONE [Concomitant]
     Active Substance: PREDNISONE
     Dosage: UNK
     Route: 065
  41. CALCIUM CARBONATE [Concomitant]
     Active Substance: CALCIUM CARBONATE
     Indication: Product used for unknown indication
     Dosage: UNK
     Route: 065
     Dates: start: 20171129, end: 20221230
  42. CALCIUM CARBONATE [Concomitant]
     Active Substance: CALCIUM CARBONATE
     Dosage: UNK
     Route: 065
     Dates: start: 20221230
  43. CALCIUM CARBONATE [Concomitant]
     Active Substance: CALCIUM CARBONATE
     Dosage: ONGOING = NOT CHECKEDUNK
     Route: 065
     Dates: start: 20221230
  44. CALCIUM\CHOLECALCIFEROL [Concomitant]
     Active Substance: CALCIUM\CHOLECALCIFEROL
     Indication: HER2 positive breast cancer
     Dosage: UNK
     Route: 065
     Dates: start: 20180308, end: 20221230
  45. CALCIUM\CHOLECALCIFEROL [Concomitant]
     Active Substance: CALCIUM\CHOLECALCIFEROL
     Dosage: UNK
     Route: 065
     Dates: start: 20170509, end: 20221230
  46. OXYCODONE [Concomitant]
     Active Substance: OXYCODONE
     Indication: Product used for unknown indication
     Dosage: 5 MG
     Route: 065
     Dates: start: 20221230, end: 20221230
  47. OXYCODONE [Concomitant]
     Active Substance: OXYCODONE
     Dosage: ONGOING = NOT CHECKEDUNK
     Route: 065
     Dates: start: 20170529, end: 20221230
  48. NALOXONE HYDROCHLORIDE\OXYCODONE HYDROCHLORIDE [Concomitant]
     Active Substance: NALOXONE HYDROCHLORIDE\OXYCODONE HYDROCHLORIDE
     Indication: Product used for unknown indication
     Dosage: 2.5 MG
     Route: 065
     Dates: start: 20170529, end: 20221230
  49. CETIRIZINE [Concomitant]
     Active Substance: CETIRIZINE HYDROCHLORIDE
     Indication: Product used for unknown indication
     Dosage: 10 MILLIGRAM
     Route: 065
     Dates: start: 20221230
  50. ZOLEDRONIC ACID [Concomitant]
     Active Substance: ZOLEDRONIC ACID
     Indication: Product used for unknown indication
     Dosage: UNK
     Route: 065
     Dates: start: 20170509, end: 20221230
  51. ACETYLCYSTEINE [Concomitant]
     Active Substance: ACETYLCYSTEINE
     Indication: Product used for unknown indication
     Dosage: UNK
     Dates: start: 20221230
  52. ACETYLCYSTEINE [Concomitant]
     Active Substance: ACETYLCYSTEINE
     Dosage: UNK (3 WEEKS)
     Route: 058
     Dates: start: 20190117
  53. LOPERAMIDE [Concomitant]
     Active Substance: LOPERAMIDE
     Indication: Product used for unknown indication
     Dosage: ONGOING = NOT CHECKEDUNK
     Route: 065
     Dates: start: 20221230, end: 20221230
  54. PREGABALIN [Concomitant]
     Active Substance: PREGABALIN
     Indication: Product used for unknown indication
     Dosage: UNK
     Route: 065
     Dates: start: 20221230
  55. PREGABALIN [Concomitant]
     Active Substance: PREGABALIN
     Dosage: ONGOING = NOT CHECKEDUNK
     Route: 065
     Dates: start: 20221230
  56. PYRIDOXINE [Concomitant]
     Active Substance: PYRIDOXINE
     Indication: Product used for unknown indication
     Dosage: ONGOING = NOT CHECKED
     Route: 065
     Dates: start: 20221230
  57. ACETAMINOPHEN [Concomitant]
     Active Substance: ACETAMINOPHEN
     Indication: Product used for unknown indication
     Dosage: ONGOING = NOT CHECKED
     Route: 065
     Dates: start: 20221230
  58. BACIDERMA [Concomitant]
     Indication: Product used for unknown indication
     Dosage: ONGOING = NOT CHECKED
     Route: 065
     Dates: start: 20221230
  59. IPRATROPIUM BROMIDE [Concomitant]
     Active Substance: IPRATROPIUM BROMIDE
     Indication: Product used for unknown indication
     Dosage: ONGOING = NOT CHECKED, 1.00 AMPULEUNK
     Route: 065
     Dates: start: 20221230
  60. RAMIPRIL [Concomitant]
     Active Substance: RAMIPRIL
     Indication: Ejection fraction decreased
     Dosage: ONGOING = NOT CHECKED
     Route: 065
     Dates: start: 20180308, end: 20221230
  61. METOCLOPRAMIDE [Concomitant]
     Active Substance: METOCLOPRAMIDE
     Indication: Product used for unknown indication
     Dosage: 10 MILLIGRAM
     Route: 065
     Dates: start: 20221230
  62. NALOXONE [Concomitant]
     Active Substance: NALOXONE
     Indication: Product used for unknown indication
     Dosage: 2.5 MILLIGRAM
     Dates: start: 20221230
  63. BUDESONIDE [Concomitant]
     Active Substance: BUDESONIDE
     Indication: Product used for unknown indication
     Dosage: UNK
     Route: 065
     Dates: start: 20221230
  64. BISOPROLOL [Concomitant]
     Active Substance: BISOPROLOL
     Indication: Product used for unknown indication
     Dosage: UNK
     Route: 065
     Dates: start: 20221230
  65. BISOPROLOL [Concomitant]
     Active Substance: BISOPROLOL
     Dosage: UNK
     Route: 065
     Dates: start: 20171129, end: 20221230
  66. CHOLECALCIFEROL [Concomitant]
     Active Substance: CHOLECALCIFEROL
     Indication: Product used for unknown indication
     Dosage: 400 INTERNATIONAL UNIT
     Route: 065
     Dates: start: 20221230, end: 20221230
  67. AZITHROMYCIN [Concomitant]
     Active Substance: AZITHROMYCIN
     Indication: Product used for unknown indication
     Dosage: UNK
     Route: 065
  68. AZITHROMYCIN [Concomitant]
     Active Substance: AZITHROMYCIN
     Dosage: UNK
     Route: 065
  69. LEVOCETIRIZINE [Concomitant]
     Active Substance: LEVOCETIRIZINE
     Indication: Product used for unknown indication
     Dosage: UNK
     Route: 065
  70. FERRIC CARBOXYMALTOSE [Concomitant]
     Active Substance: FERRIC CARBOXYMALTOSE
     Indication: Product used for unknown indication
     Dosage: UNK
     Route: 065
  71. CETIRIZINE HYDROCHLORIDE [Concomitant]
     Active Substance: CETIRIZINE HYDROCHLORIDE
     Indication: Ejection fraction decreased
     Dosage: 10 MILLIGRAM
     Route: 065
     Dates: start: 20221230

REACTIONS (5)
  - Febrile neutropenia [Fatal]
  - Pyrexia [Fatal]
  - Pancytopenia [Fatal]
  - Pneumonia [Fatal]
  - Malignant neoplasm progression [Fatal]

NARRATIVE: CASE EVENT DATE: 20221227
